FAERS Safety Report 7294656-6 (Version None)
Quarter: 2011Q1

REPORT INFORMATION
  Report Type: 
  Country: None (occurrence: None)
  Receive Date: 20110216
  Receipt Date: 20110207
  Transmission Date: 20110831
  Serious: Yes (Other)
  Sender: FDA-Public Use
  Company Number: DE-RANBAXY-2010US-33949

PATIENT

DRUGS (5)
  1. CLINDAMYCIN [Suspect]
     Indication: TOOTH DISORDER
     Dosage: UNK, UNK
     Route: 065
     Dates: start: 20100301
  2. PROTONIX [Suspect]
     Indication: GASTROOESOPHAGEAL REFLUX DISEASE
     Dosage: 40 MG, QD
     Route: 048
     Dates: start: 20091228, end: 20100301
  3. IBUPROFEN [Concomitant]
     Indication: PRODUCT USED FOR UNKNOWN INDICATION
     Route: 065
  4. DOXYCYCLINE [Suspect]
     Indication: LYME DISEASE
     Dosage: UNK , UNK
     Route: 065
     Dates: start: 20100301
  5. TYLENOL [Concomitant]
     Indication: PRODUCT USED FOR UNKNOWN INDICATION
     Route: 065

REACTIONS (3)
  - DYSPNOEA [None]
  - PARAESTHESIA [None]
  - GASTROOESOPHAGEAL REFLUX DISEASE [None]
